FAERS Safety Report 24193781 (Version 1)
Quarter: 2024Q3

REPORT INFORMATION
  Report Type: Other
  Country: CN (occurrence: CN)
  Receive Date: 20240809
  Receipt Date: 20240809
  Transmission Date: 20241017
  Serious: Yes (Hospitalization, Other)
  Sender: THE ACME LABORATORIES
  Company Number: CN-The ACME Laboratories Ltd-2160233

PATIENT
  Age: 40 Year
  Sex: Male

DRUGS (6)
  1. ZOLPIDEM TARTRATE [Suspect]
     Active Substance: ZOLPIDEM TARTRATE
     Indication: Product used for unknown indication
     Route: 065
  2. DIGOXIN [Interacting]
     Active Substance: DIGOXIN
     Route: 065
  3. SACUBITRIL\VALSARTAN [Interacting]
     Active Substance: SACUBITRIL\VALSARTAN
     Route: 065
  4. BISOPROLOL. [Interacting]
     Active Substance: BISOPROLOL FUMARATE
     Route: 065
  5. FUROSEMIDE [Interacting]
     Active Substance: FUROSEMIDE
     Route: 065
  6. SPIRONOLACTONE [Interacting]
     Active Substance: SPIRONOLACTONE
     Route: 065

REACTIONS (11)
  - Atrial fibrillation [Recovered/Resolved]
  - Overdose [Unknown]
  - Drug interaction [Unknown]
  - Left ventricular hypertrophy [Recovered/Resolved]
  - Left atrial enlargement [Recovered/Resolved]
  - Ventricular extrasystoles [Recovered/Resolved]
  - Bundle branch block right [Recovered/Resolved]
  - Lethargy [Recovered/Resolved]
  - Hypokinesia [Recovered/Resolved]
  - Ejection fraction decreased [Recovered/Resolved]
  - Mitral valve incompetence [Recovered/Resolved]
